FAERS Safety Report 4401797-7 (Version None)
Quarter: 2004Q3

REPORT INFORMATION
  Report Type: 
  Country: None (occurrence: None)
  Receive Date: 20040719
  Receipt Date: 20030130
  Transmission Date: 20050211
  Serious: Yes (Hospitalization, Disabling, Other)
  Sender: FDA-Public Use
  Company Number: US-MERCK-0301USA03170

PATIENT
  Age: 47 Year
  Sex: Male
  Weight: 88 kg

DRUGS (1)
  1. VIOXX [Suspect]
     Route: 048

REACTIONS (32)
  - AFFECTIVE DISORDER [None]
  - ALCOHOL POISONING [None]
  - ALCOHOL WITHDRAWAL SYNDROME [None]
  - ALCOHOLIC LIVER DISEASE [None]
  - ANXIETY [None]
  - CARDIAC FAILURE CONGESTIVE [None]
  - CARDIO-RESPIRATORY ARREST [None]
  - CHEST PAIN [None]
  - CHRONIC FATIGUE SYNDROME [None]
  - CHRONIC OBSTRUCTIVE AIRWAYS DISEASE [None]
  - COLONIC POLYP [None]
  - DEEP VEIN THROMBOSIS [None]
  - DEPRESSION [None]
  - DERMATITIS [None]
  - DIVERTICULUM [None]
  - FALL [None]
  - GASTRITIS [None]
  - GASTROINTESTINAL HAEMORRHAGE [None]
  - GOUT [None]
  - HAEMORRHOIDS [None]
  - HEPATIC ENCEPHALOPATHY [None]
  - HYPERNATRAEMIA [None]
  - HYPERTENSION [None]
  - MYOCARDIAL INFARCTION [None]
  - OESOPHAGITIS [None]
  - PALPITATIONS [None]
  - PERITONITIS BACTERIAL [None]
  - PNEUMONIA ASPIRATION [None]
  - RENAL FAILURE ACUTE [None]
  - RESPIRATORY FAILURE [None]
  - SYNCOPE [None]
  - VARICES OESOPHAGEAL [None]
